FAERS Safety Report 9908367 (Version 3)
Quarter: 2014Q1

REPORT INFORMATION
  Report Type: Report from Study
  Country: CH (occurrence: CH)
  Receive Date: 20140219
  Receipt Date: 20140307
  Transmission Date: 20141002
  Serious: Yes (Life-Threatening)
  Sender: FDA-Public Use
  Company Number: CH-BAYER-2014-024589

PATIENT
  Age: 64 Year
  Sex: Male
  Weight: 72 kg

DRUGS (12)
  1. REGORAFENIB [Suspect]
     Indication: COLORECTAL CANCER
     Dosage: 160 MG DAILY
     Route: 048
     Dates: start: 20130312, end: 20130402
  2. REGORAFENIB [Suspect]
     Indication: COLORECTAL CANCER
     Dosage: 160 MG DAILY
     Route: 048
     Dates: start: 20130312, end: 20130402
  3. REGORAFENIB [Suspect]
     Indication: COLORECTAL CANCER
     Dosage: 160 MG DAILY
     Route: 048
     Dates: start: 20130312, end: 20130402
  4. REGORAFENIB [Suspect]
     Indication: COLORECTAL CANCER
     Dosage: 160 MG DAILY
     Route: 048
     Dates: start: 20130409, end: 20130429
  5. REGORAFENIB [Suspect]
     Indication: COLORECTAL CANCER
     Dosage: 160 MG DAILY
     Route: 048
     Dates: start: 20130409, end: 20130429
  6. REGORAFENIB [Suspect]
     Indication: COLORECTAL CANCER
     Dosage: 160 MG DAILY
     Route: 048
     Dates: start: 20130409, end: 20130429
  7. REGORAFENIB [Suspect]
     Indication: COLORECTAL CANCER
     Dosage: 120 MG DAILY
     Route: 048
     Dates: start: 20130528, end: 20130609
  8. REGORAFENIB [Suspect]
     Indication: COLORECTAL CANCER
     Dosage: 120 MG DAILY
     Route: 048
     Dates: start: 20130528, end: 20130609
  9. REGORAFENIB [Suspect]
     Indication: COLORECTAL CANCER
     Dosage: 120 MG DAILY
     Route: 048
     Dates: start: 20130528, end: 20130609
  10. REGORAFENIB [Suspect]
     Indication: COLORECTAL CANCER
     Dosage: 80 MG DAILY
     Route: 048
     Dates: start: 20130612, end: 20130618
  11. REGORAFENIB [Suspect]
     Indication: COLORECTAL CANCER
     Dosage: 80 MG DAILY
     Route: 048
     Dates: start: 20130612, end: 20130618
  12. REGORAFENIB [Suspect]
     Indication: COLORECTAL CANCER
     Dosage: 80 MG DAILY
     Route: 048
     Dates: start: 20130612, end: 20130618

REACTIONS (1)
  - Hypophosphataemia [Not Recovered/Not Resolved]
